FAERS Safety Report 26185708 (Version 1)
Quarter: 2025Q4

REPORT INFORMATION
  Report Type: Spontaneous
  Country: US (occurrence: US)
  Receive Date: 20251222
  Receipt Date: 20251222
  Transmission Date: 20260118
  Serious: Yes (Other)
  Sender: BAYER HEALTHCARE LLC
  Company Number: US-BAYER-2025A165337

PATIENT
  Sex: Male

DRUGS (2)
  1. LOTRIMIN AF ANTIFUNGAL [Suspect]
     Active Substance: MICONAZOLE NITRATE
     Route: 061
  2. TINACTIN [Suspect]
     Active Substance: TOLNAFTATE
     Route: 061

REACTIONS (10)
  - Mesothelioma malignant [None]
  - Exposure to chemical pollution [None]
  - Pain [None]
  - Injury [None]
  - Illness [None]
  - Emotional distress [None]
  - Anxiety [None]
  - Impaired quality of life [None]
  - General physical health deterioration [None]
  - Loss of employment [None]

NARRATIVE: CASE EVENT DATE: 19500101
